FAERS Safety Report 6930307-5 (Version None)
Quarter: 2010Q3

REPORT INFORMATION
  Report Type: 
  Country: None (occurrence: None)
  Receive Date: 20100818
  Receipt Date: 20100811
  Transmission Date: 20110219
  Serious: No
  Sender: FDA-Public Use
  Company Number: A0876168A

PATIENT
  Sex: Female

DRUGS (3)
  1. NEOTIGASON [Suspect]
     Indication: ACNE
     Dosage: 10MG PER DAY
     Route: 048
     Dates: start: 20100720, end: 20100805
  2. TRETINOIN [Concomitant]
     Indication: PRODUCT USED FOR UNKNOWN INDICATION
     Route: 061
     Dates: start: 20100803, end: 20100805
  3. SOAP [Concomitant]

REACTIONS (1)
  - DRUG EXPOSURE DURING PREGNANCY [None]
